FAERS Safety Report 13201668 (Version 1)
Quarter: 2017Q1

REPORT INFORMATION
  Report Type: Spontaneous
  Country: US (occurrence: US)
  Receive Date: 20170208
  Receipt Date: 20170208
  Transmission Date: 20170428
  Serious: No
  Sender: FDA-Public Use
  Company Number: US-AMGEN-USASP2016069775

PATIENT

DRUGS (7)
  1. NOLVADEX                           /00388701/ [Concomitant]
     Active Substance: TAMOXIFEN CITRATE
     Dosage: UNK
  2. TAMONE [Concomitant]
     Dosage: UNK
  3. CYTOXAN [Concomitant]
     Active Substance: CYCLOPHOSPHAMIDE
     Indication: INVASIVE DUCTAL BREAST CARCINOMA
     Dosage: UNK
  4. APO-TAMOX [Concomitant]
     Active Substance: TAMOXIFEN
     Dosage: UNK
  5. TAMOFEN [Concomitant]
     Active Substance: TAMOXIFEN CITRATE
     Dosage: UNK
  6. NEULASTA [Suspect]
     Active Substance: PEGFILGRASTIM
     Indication: PRODUCT USED FOR UNKNOWN INDICATION
     Dosage: UNK UNK, UNK
     Route: 065
  7. TAXOTERE [Concomitant]
     Active Substance: DOCETAXEL
     Indication: INVASIVE DUCTAL BREAST CARCINOMA
     Dosage: UNK

REACTIONS (11)
  - Surgery [Unknown]
  - Pain in jaw [Unknown]
  - Hot flush [Unknown]
  - Scar pain [Unknown]
  - Hyperaesthesia [Unknown]
  - Toothache [Unknown]
  - Erythema [Unknown]
  - Pain [Unknown]
  - Axillary pain [Unknown]
  - Body temperature fluctuation [Unknown]
  - Alopecia [Unknown]
